FAERS Safety Report 5851277-7 (Version None)
Quarter: 2008Q3

REPORT INFORMATION
  Report Type: 
  Country: None (occurrence: None)
  Receive Date: 20080820
  Receipt Date: 20080806
  Transmission Date: 20090109
  Serious: Yes (Hospitalization, Other)
  Sender: FDA-Public Use
  Company Number: US-ELI_LILLY_AND_COMPANY-US200807004574

PATIENT
  Sex: Female

DRUGS (7)
  1. FORTEO [Suspect]
     Indication: OSTEOPOROSIS
     Dosage: 20 UG, DAILY (1/D)
     Dates: start: 20061101, end: 20070101
  2. FORTEO [Suspect]
     Dosage: 20 UG, DAILY (1/D)
     Dates: start: 20080606, end: 20080718
  3. EFFEXOR [Concomitant]
  4. LIPITOR [Concomitant]
  5. ASPIRIN [Concomitant]
  6. LISINOPRIL [Concomitant]
  7. ZETIA [Concomitant]

REACTIONS (11)
  - AORTIC VALVE DISEASE [None]
  - ASTHENIA [None]
  - BONE DENSITY DECREASED [None]
  - CONTUSION [None]
  - DIZZINESS [None]
  - FALL [None]
  - FLUID RETENTION [None]
  - INFLUENZA LIKE ILLNESS [None]
  - MITRAL VALVE DISEASE [None]
  - MYALGIA [None]
  - TREMOR [None]
